FAERS Safety Report 15939966 (Version 5)
Quarter: 2020Q1

REPORT INFORMATION
  Report Type: Spontaneous
  Country: US (occurrence: US)
  Receive Date: 20190208
  Receipt Date: 20200207
  Transmission Date: 20200409
  Serious: Yes (Other)
  Sender: FDA-Public Use
  Company Number: US-ASTRAZENECA-2018SF34687

PATIENT
  Age: 24319 Day
  Sex: Female

DRUGS (57)
  1. CALCIUM ACETATE. [Concomitant]
     Active Substance: CALCIUM ACETATE
     Dates: start: 20130106
  2. AMOXICILLIN. [Concomitant]
     Active Substance: AMOXICILLIN
     Dates: start: 20130321
  3. AMLODIPINE [Concomitant]
     Active Substance: AMLODIPINE BESYLATE
     Dates: start: 20120521
  4. TRIMOX [Concomitant]
     Active Substance: AMOXICILLIN
  5. REZULIN [Concomitant]
     Active Substance: TROGLITAZONE
  6. XALATAN [Concomitant]
     Active Substance: LATANOPROST
  7. NEXIUM [Suspect]
     Active Substance: ESOMEPRAZOLE MAGNESIUM
     Indication: GASTROOESOPHAGEAL REFLUX DISEASE
     Dosage: GENERIC
     Route: 065
     Dates: start: 20170307, end: 20170902
  8. DEXILANT [Suspect]
     Active Substance: DEXLANSOPRAZOLE
     Indication: GASTROOESOPHAGEAL REFLUX DISEASE
     Route: 065
     Dates: start: 20150427, end: 20161004
  9. PEPCID [Concomitant]
     Active Substance: FAMOTIDINE
  10. VOLMAX [Concomitant]
     Active Substance: ALBUTEROL SULFATE
  11. LUMIGAN [Concomitant]
     Active Substance: BIMATOPROST
  12. INDOMETHACIN. [Concomitant]
     Active Substance: INDOMETHACIN
     Dates: start: 20140331
  13. PRILOSEC [Suspect]
     Active Substance: OMEPRAZOLE MAGNESIUM
     Indication: GASTROOESOPHAGEAL REFLUX DISEASE
     Route: 048
     Dates: start: 201504, end: 201702
  14. PRILOSEC OTC [Suspect]
     Active Substance: OMEPRAZOLE MAGNESIUM
     Route: 048
     Dates: start: 201504, end: 201702
  15. GLIPIZIDE. [Concomitant]
     Active Substance: GLIPIZIDE
     Dates: start: 20130306
  16. TEMAZEPAM. [Concomitant]
     Active Substance: TEMAZEPAM
     Dates: start: 20090225
  17. GABAPENTIN. [Concomitant]
     Active Substance: GABAPENTIN
  18. BIAXIN [Concomitant]
     Active Substance: CLARITHROMYCIN
  19. PREVACID 24 HR [Suspect]
     Active Substance: LANSOPRAZOLE
     Route: 065
  20. TOBRAMYCIN AND DEXAMETHASONE [Concomitant]
     Active Substance: DEXAMETHASONE\TOBRAMYCIN
     Dates: start: 20130124
  21. AZOPT [Concomitant]
     Active Substance: BRINZOLAMIDE
     Dates: start: 20130418
  22. CLONIDINE. [Concomitant]
     Active Substance: CLONIDINE
  23. TRAVATAN [Concomitant]
     Active Substance: TRAVOPROST
  24. DEXILANT [Suspect]
     Active Substance: DEXLANSOPRAZOLE
     Indication: GASTROOESOPHAGEAL REFLUX DISEASE
     Route: 065
     Dates: start: 20160315
  25. METOCLOPRAMIDE. [Concomitant]
     Active Substance: METOCLOPRAMIDE
  26. CLONIDINE. [Concomitant]
     Active Substance: CLONIDINE
  27. LORAZEPAM. [Concomitant]
     Active Substance: LORAZEPAM
  28. AMOXICILLIN. [Concomitant]
     Active Substance: AMOXICILLIN
  29. MILK OF MAGNESIA [Concomitant]
     Active Substance: MAGNESIUM HYDROXIDE
  30. NEXIUM 24HR [Suspect]
     Active Substance: ESOMEPRAZOLE MAGNESIUM
     Route: 048
     Dates: start: 201504, end: 201702
  31. DEXILANT [Suspect]
     Active Substance: DEXLANSOPRAZOLE
     Indication: GASTROOESOPHAGEAL REFLUX DISEASE
     Route: 065
     Dates: start: 201504, end: 201702
  32. MECLIZINE [Concomitant]
     Active Substance: MECLIZINE HYDROCHLORIDE
     Dates: start: 20120809
  33. GENTAMICIN. [Concomitant]
     Active Substance: GENTAMICIN
  34. HUMULIN NOS [Concomitant]
     Active Substance: INSULIN HUMAN
  35. LESCOL [Concomitant]
     Active Substance: FLUVASTATIN SODIUM
  36. PEPTO-BISMOL [Concomitant]
     Active Substance: BISMUTH SUBSALICYLATE
  37. NEXIUM [Suspect]
     Active Substance: ESOMEPRAZOLE MAGNESIUM
     Indication: GASTROOESOPHAGEAL REFLUX DISEASE
     Route: 048
     Dates: start: 201504, end: 201702
  38. SENSIPAR [Concomitant]
     Active Substance: CINACALCET HYDROCHLORIDE
     Dates: start: 20130104
  39. ISOSORBIDE. [Concomitant]
     Active Substance: ISOSORBIDE
     Dates: start: 20130104
  40. ESCITALOPRAM [Concomitant]
     Active Substance: ESCITALOPRAM OXALATE
     Dates: start: 20130222
  41. NASONEX [Concomitant]
     Active Substance: MOMETASONE FUROATE
     Dates: start: 20130820
  42. CLARITHROMYCIN. [Concomitant]
     Active Substance: CLARITHROMYCIN
     Dates: start: 20150730
  43. LINZESS [Concomitant]
     Active Substance: LINACLOTIDE
     Dates: start: 20170414
  44. BENZONATATE. [Concomitant]
     Active Substance: BENZONATATE
     Dates: start: 20170822
  45. TRIAMCINOLON [Concomitant]
  46. PAXIL [Concomitant]
     Active Substance: PAROXETINE HYDROCHLORIDE
  47. PYRIDOXINE [Concomitant]
     Active Substance: PYRIDOXINE
  48. ISONIAZID. [Concomitant]
     Active Substance: ISONIAZID
  49. OFLOXACIN. [Concomitant]
     Active Substance: OFLOXACIN
  50. FLUTICASONE. [Concomitant]
     Active Substance: FLUTICASONE
  51. NEXIUM [Suspect]
     Active Substance: ESOMEPRAZOLE MAGNESIUM
     Indication: GASTROOESOPHAGEAL REFLUX DISEASE
     Route: 048
     Dates: start: 20160826, end: 20170203
  52. PRILOSEC [Suspect]
     Active Substance: OMEPRAZOLE MAGNESIUM
     Indication: GASTROOESOPHAGEAL REFLUX DISEASE
     Dosage: GENERIC
     Route: 065
     Dates: start: 20140626, end: 20140823
  53. HYDROCODON-ACETAMINOPHEN [Concomitant]
     Active Substance: ACETAMINOPHEN\HYDROCODONE
     Dates: start: 20130514
  54. AZMACORT [Concomitant]
     Active Substance: TRIAMCINOLONE ACETONIDE
  55. ZITHROMAX [Concomitant]
     Active Substance: AZITHROMYCIN DIHYDRATE
  56. AZITHROMYCIN ANHYDROUS. [Concomitant]
     Active Substance: AZITHROMYCIN ANHYDROUS
  57. LORATADINE. [Concomitant]
     Active Substance: LORATADINE

REACTIONS (7)
  - Chronic kidney disease [Not Recovered/Not Resolved]
  - End stage renal disease [Unknown]
  - Acute kidney injury [Not Recovered/Not Resolved]
  - Tubulointerstitial nephritis [Not Recovered/Not Resolved]
  - Nephrogenic anaemia [Unknown]
  - Renal failure [Unknown]
  - Renal injury [Unknown]

NARRATIVE: CASE EVENT DATE: 20060121
